FAERS Safety Report 17153860 (Version 1)
Quarter: 2019Q4

REPORT INFORMATION
  Report Type: Spontaneous
  Country: US (occurrence: US)
  Receive Date: 20191213
  Receipt Date: 20191213
  Transmission Date: 20200122
  Serious: No
  Sender: FDA-Public Use
  Company Number: US-TEVA-2019-US-1151878

PATIENT
  Sex: Female

DRUGS (1)
  1. CLONAZEPAM TABLET TEVA [Suspect]
     Active Substance: CLONAZEPAM
     Route: 065

REACTIONS (3)
  - Product substitution issue [Unknown]
  - Anxiety [Unknown]
  - Hypertension [Unknown]
